FAERS Safety Report 12565813 (Version 5)
Quarter: 2016Q4

REPORT INFORMATION
  Report Type: Report from Study
  Country: US (occurrence: US)
  Receive Date: 20160718
  Receipt Date: 20161122
  Transmission Date: 20170207
  Serious: Yes (Hospitalization)
  Sender: FDA-Public Use
  Company Number: US-EISAI MEDICAL RESEARCH-EC-2016-018558

PATIENT
  Age: 23 Year
  Sex: Female
  Weight: 47 kg

DRUGS (8)
  1. LENVIMA [Suspect]
     Active Substance: LENVATINIB
     Indication: MALIGNANT CONNECTIVE TISSUE NEOPLASM
     Route: 048
     Dates: start: 20160621, end: 20160710
  2. VITAMIN B6 [Concomitant]
     Active Substance: PYRIDOXINE HYDROCHLORIDE
  3. LENVIMA [Suspect]
     Active Substance: LENVATINIB
     Route: 048
     Dates: start: 20161020, end: 2016
  4. VITAMIN D2 [Concomitant]
     Active Substance: ERGOCALCIFEROL
  5. LENVIMA [Suspect]
     Active Substance: LENVATINIB
     Dosage: 14 MG ON M, W FR AND 20 MG T, TH, SAT, SUN
     Route: 048
     Dates: start: 20161110
  6. LENVIMA [Suspect]
     Active Substance: LENVATINIB
     Indication: ALVEOLAR SOFT PART SARCOMA
     Route: 048
     Dates: start: 2016, end: 20160822
  7. GABAPENTIN. [Concomitant]
     Active Substance: GABAPENTIN
  8. ZOFRAN [Concomitant]
     Active Substance: ONDANSETRON HYDROCHLORIDE

REACTIONS (11)
  - Colitis [Unknown]
  - Clostridium difficile colitis [Recovered/Resolved]
  - Cough [Recovered/Resolved]
  - Fatigue [Unknown]
  - Influenza like illness [Unknown]
  - Pain in extremity [Not Recovered/Not Resolved]
  - Dehydration [Unknown]
  - Pain [Unknown]
  - Nasal congestion [Recovered/Resolved]
  - Pathological fracture [Unknown]
  - Abdominal discomfort [Unknown]

NARRATIVE: CASE EVENT DATE: 201607
